FAERS Safety Report 19175624 (Version 5)
Quarter: 2022Q2

REPORT INFORMATION
  Report Type: Spontaneous
  Country: IN (occurrence: IN)
  Receive Date: 20210423
  Receipt Date: 20220405
  Transmission Date: 20220721
  Serious: Yes (Death, Hospitalization, Other)
  Sender: FDA-Public Use
  Company Number: IN-PFIZER INC-2021447902

PATIENT
  Age: 70 Year
  Sex: Female

DRUGS (3)
  1. PALBOCICLIB [Suspect]
     Active Substance: PALBOCICLIB
     Indication: Breast cancer metastatic
     Dosage: 125 MG, 1X/DAY
     Route: 048
     Dates: start: 20210319
  2. PALBOCICLIB [Suspect]
     Active Substance: PALBOCICLIB
     Dosage: 100 MG, ONCE A DAY X 21 DAYS, 7 DAYS OFF
     Route: 048
     Dates: start: 20210317, end: 202202
  3. FULVESTRANT [Concomitant]
     Active Substance: FULVESTRANT
     Dosage: 500 MG (IM EVERY MONTH X 6 MONTHS)
     Route: 030

REACTIONS (6)
  - Death [Fatal]
  - Thrombosis [Unknown]
  - Pleural effusion [Unknown]
  - Disorientation [Unknown]
  - Neoplasm progression [Unknown]
  - Blood test abnormal [Unknown]
